FAERS Safety Report 10271492 (Version 2)
Quarter: 2017Q4

REPORT INFORMATION
  Report Type: Report from Study
  Country: GB (occurrence: GB)
  Receive Date: 20140701
  Receipt Date: 20171117
  Transmission Date: 20180320
  Serious: Yes (Death)
  Sender: FDA-Public Use
  Company Number: GB-JNJFOC-20140619380

PATIENT
  Sex: Male
  Weight: 72.1 kg

DRUGS (7)
  1. USTEKINUMAB [Suspect]
     Active Substance: USTEKINUMAB
     Indication: PSORIASIS
     Route: 058
     Dates: start: 20111230, end: 20130121
  2. PARACETAMOL [Concomitant]
     Active Substance: ACETAMINOPHEN
  3. METFORMIN [Concomitant]
     Active Substance: METFORMIN HYDROCHLORIDE
     Route: 065
  4. CAPTOPRIL. [Concomitant]
     Active Substance: CAPTOPRIL
     Route: 065
  5. ACITRETIN. [Concomitant]
     Active Substance: ACITRETIN
     Route: 065
     Dates: start: 20121208
  6. CYCLOSPORIN [Concomitant]
     Active Substance: CYCLOSPORINE
     Route: 065
     Dates: start: 20130121
  7. METHOTREXATE. [Concomitant]
     Active Substance: METHOTREXATE
     Route: 065
     Dates: start: 20101208

REACTIONS (1)
  - Lung adenocarcinoma [Fatal]
